FAERS Safety Report 14542422 (Version 1)
Quarter: 2018Q1

REPORT INFORMATION
  Report Type: Spontaneous
  Country: GB (occurrence: GB)
  Receive Date: 20180216
  Receipt Date: 20180216
  Transmission Date: 20180509
  Serious: Yes (Hospitalization)
  Sender: FDA-Public Use
  Company Number: GB-OTSUKA-DJ201404236

PATIENT
  Sex: Male

DRUGS (4)
  1. MELATONIN [Concomitant]
     Active Substance: MELATONIN
     Indication: PRODUCT USED FOR UNKNOWN INDICATION
     Dosage: UNK
     Route: 065
  2. GABAPENTIN. [Concomitant]
     Active Substance: GABAPENTIN
     Indication: PRODUCT USED FOR UNKNOWN INDICATION
     Dosage: UNK
     Route: 065
  3. ABILIFY [Suspect]
     Active Substance: ARIPIPRAZOLE
     Indication: AGITATION
     Dosage: 10 MG, UNK
     Route: 048
  4. PROBIOTICA [Concomitant]
     Active Substance: PROBIOTICS NOS
     Indication: PRODUCT USED FOR UNKNOWN INDICATION
     Dosage: UNK
     Route: 065
     Dates: start: 20131005, end: 20131025

REACTIONS (10)
  - Skin discolouration [Recovering/Resolving]
  - Chest pain [Recovering/Resolving]
  - Glassy eyes [Recovering/Resolving]
  - Balance disorder [Recovering/Resolving]
  - Tremor [Unknown]
  - Swelling face [Unknown]
  - Vomiting [Unknown]
  - Off label use [Unknown]
  - Cold sweat [Unknown]
  - Pallor [Recovering/Resolving]

NARRATIVE: CASE EVENT DATE: 201310
